FAERS Safety Report 25230635 (Version 2)
Quarter: 2025Q3

REPORT INFORMATION
  Report Type: Spontaneous
  Country: US (occurrence: US)
  Receive Date: 20250423
  Receipt Date: 20250708
  Transmission Date: 20251020
  Serious: No
  Sender: SANOFI AVENTIS
  Company Number: US-SA-2025SA115848

PATIENT
  Age: 40 Year
  Sex: Male

DRUGS (9)
  1. DUPIXENT [Suspect]
     Active Substance: DUPILUMAB
     Indication: Dermatitis atopic
     Route: 058
     Dates: start: 20220725
  2. FISH OIL [Concomitant]
     Active Substance: FISH OIL
  3. BUPROPION [Concomitant]
     Active Substance: BUPROPION
  4. METHYLPHENIDATE [Concomitant]
     Active Substance: METHYLPHENIDATE
  5. CLOBETASOL [Concomitant]
     Active Substance: CLOBETASOL
  6. MELATONIN [Concomitant]
     Active Substance: MELATONIN
  7. VITAMIN D NOS [Concomitant]
     Active Substance: CHOLECALCIFEROL\ERGOCALCIFEROL
  8. VITAMIN B [Concomitant]
     Active Substance: VITAMIN B
  9. ALEVE [Concomitant]
     Active Substance: NAPROXEN SODIUM

REACTIONS (2)
  - Skin papilloma [Unknown]
  - Dermatitis atopic [Unknown]

NARRATIVE: CASE EVENT DATE: 20250416
